FAERS Safety Report 5650021-6 (Version None)
Quarter: 2008Q1

REPORT INFORMATION
  Report Type: 
  Country: None (occurrence: None)
  Receive Date: 20080304
  Receipt Date: 20080221
  Transmission Date: 20080703
  Serious: Yes (Life-Threatening, Hospitalization)
  Sender: FDA-Public Use
  Company Number: FR-GILEAD-2007-0014418

PATIENT
  Sex: Male
  Weight: 60 kg

DRUGS (11)
  1. TRUVADA [Suspect]
     Indication: HIV INFECTION
     Route: 048
     Dates: start: 20071030, end: 20080201
  2. SUSTIVA [Suspect]
     Indication: HIV INFECTION
     Route: 048
     Dates: start: 20071030
  3. BACTRIM [Suspect]
     Indication: ANTIFUNGAL PROPHYLAXIS
     Route: 048
     Dates: start: 20070928, end: 20071114
  4. RIFADIN [Suspect]
     Indication: TUBERCULOSIS
     Route: 048
     Dates: start: 20070928
  5. RIFADIN [Suspect]
     Route: 048
     Dates: start: 20071006, end: 20080201
  6. RIMIFON [Suspect]
     Indication: TUBERCULOSIS
     Dates: start: 20070928
  7. RIMIFON [Suspect]
     Route: 048
     Dates: start: 20071006
  8. HEPARIN [Suspect]
     Indication: PROPHYLAXIS
     Route: 042
     Dates: start: 20070126
  9. MYAMBUTOL [Concomitant]
     Indication: TUBERCULOSIS
     Route: 048
     Dates: start: 20071006, end: 20071221
  10. PIRILENE [Concomitant]
     Indication: TUBERCULOSIS
     Route: 048
     Dates: start: 20071006, end: 20071221
  11. ATOVAQUONE [Concomitant]
     Indication: ANTIFUNGAL PROPHYLAXIS
     Dates: start: 20071206

REACTIONS (23)
  - AGITATION [None]
  - ANION GAP INCREASED [None]
  - ASPARTATE AMINOTRANSFERASE INCREASED [None]
  - BLOOD ALKALINE PHOSPHATASE INCREASED [None]
  - BUNDLE BRANCH BLOCK RIGHT [None]
  - CATHETER THROMBOSIS [None]
  - COR PULMONALE ACUTE [None]
  - DEEP VEIN THROMBOSIS [None]
  - DRUG HYPERSENSITIVITY [None]
  - GAMMA-GLUTAMYLTRANSFERASE INCREASED [None]
  - GLOMERULONEPHRITIS [None]
  - HAEMODYNAMIC INSTABILITY [None]
  - NEPHROPATHY TOXIC [None]
  - NERVOUS SYSTEM DISORDER [None]
  - PERICARDIAL EFFUSION [None]
  - PHLEBITIS [None]
  - PNEUMOTHORAX [None]
  - PROTEIN TOTAL INCREASED [None]
  - PULMONARY EMBOLISM [None]
  - PYREXIA [None]
  - RENAL FAILURE ACUTE [None]
  - RENAL TUBULAR NECROSIS [None]
  - VENOUS OCCLUSION [None]
